FAERS Safety Report 9456470 (Version 1)
Quarter: 2013Q3

REPORT INFORMATION
  Report Type: Spontaneous
  Country: FR (occurrence: FR)
  Receive Date: 20130813
  Receipt Date: 20130813
  Transmission Date: 20140515
  Serious: Yes (Hospitalization, Other)
  Sender: FDA-Public Use
  Company Number: FR-ELI_LILLY_AND_COMPANY-FR201308000781

PATIENT
  Sex: Female

DRUGS (2)
  1. GEMZAR [Suspect]
     Indication: BREAST CANCER METASTATIC
     Dosage: 1500 MG, UNKNOWN
     Route: 042
     Dates: start: 20121004, end: 20121012
  2. CARBOPLATIN [Suspect]
     Indication: BREAST CANCER METASTATIC
     Dosage: 1500 MG, UNKNOWN
     Route: 042
     Dates: start: 20121004

REACTIONS (3)
  - Necrosis ischaemic [Not Recovered/Not Resolved]
  - Peripheral embolism [Unknown]
  - Cardiac murmur [Unknown]
